FAERS Safety Report 20062048 (Version 1)
Quarter: 2021Q4

REPORT INFORMATION
  Report Type: Spontaneous
  Country: TW (occurrence: TW)
  Receive Date: 20211112
  Receipt Date: 20211112
  Transmission Date: 20220303
  Serious: Yes (Other)
  Sender: FDA-Public Use
  Company Number: TW-BAYER-2021A248607

PATIENT
  Age: 83 Year
  Sex: Female

DRUGS (2)
  1. NEXAVAR [Suspect]
     Active Substance: SORAFENIB
     Indication: Hepatocellular carcinoma
     Dosage: 2 DF, BID
     Dates: start: 201801, end: 201807
  2. STIVARGA [Suspect]
     Active Substance: REGORAFENIB
     Indication: Hepatocellular carcinoma
     Dosage: UNK
     Dates: start: 201807, end: 2019

REACTIONS (2)
  - Hepatocellular carcinoma [None]
  - Metastases to lung [None]

NARRATIVE: CASE EVENT DATE: 20180701
